FAERS Safety Report 17722371 (Version 8)
Quarter: 2022Q4

REPORT INFORMATION
  Report Type: Spontaneous
  Country: US (occurrence: US)
  Receive Date: 20200429
  Receipt Date: 20221006
  Transmission Date: 20230113
  Serious: No
  Sender: FDA-Public Use
  Company Number: US-PFIZER INC-2020171635

PATIENT
  Age: 70 Year
  Sex: Female
  Weight: 58.059 kg

DRUGS (6)
  1. PREMARIN [Suspect]
     Active Substance: ESTROGENS, CONJUGATED
     Indication: Menopause
     Dosage: 0.625 MG, 1X/DAY
     Route: 048
     Dates: start: 2018
  2. PREMARIN [Suspect]
     Active Substance: ESTROGENS, CONJUGATED
     Indication: Hot flush
     Dosage: 0.3 MG
  3. PREMARIN [Suspect]
     Active Substance: ESTROGENS, CONJUGATED
     Indication: Hyperhidrosis
  4. LOSARTAN [Concomitant]
     Active Substance: LOSARTAN
     Indication: Hypertension
     Dosage: 10 MG, DAILY
  5. DULCOLAX (BISACODYL) [Concomitant]
     Active Substance: BISACODYL
     Dosage: UNK
  6. ACETAMINOPHEN\OXYCODONE HYDROCHLORIDE\OXYCODONE TEREPHTHALATE [Concomitant]
     Active Substance: ACETAMINOPHEN\OXYCODONE HYDROCHLORIDE\OXYCODONE TEREPHTHALATE
     Indication: Pain management
     Dosage: 10.325 MG, AS NEEDED

REACTIONS (10)
  - Weight decreased [Unknown]
  - Illness [Unknown]
  - Hypertension [Unknown]
  - Bone disorder [Not Recovered/Not Resolved]
  - Malabsorption [Unknown]
  - Tooth abscess [Unknown]
  - Therapeutic product effect incomplete [Unknown]
  - Intentional dose omission [Unknown]
  - Product dispensing error [Unknown]
  - Underdose [Unknown]

NARRATIVE: CASE EVENT DATE: 20200101
